FAERS Safety Report 9504601 (Version 1)
Quarter: 2013Q3

REPORT INFORMATION
  Report Type: Spontaneous
  Country: FR (occurrence: FR)
  Receive Date: 20130906
  Receipt Date: 20130906
  Transmission Date: 20140515
  Serious: Yes (Hospitalization)
  Sender: FDA-Public Use
  Company Number: FR-ASTRAZENECA-2013SE67052

PATIENT
  Age: 846 Month
  Sex: Female

DRUGS (11)
  1. INEXIUM [Suspect]
     Route: 048
     Dates: start: 20120802
  2. METFORMINE [Suspect]
     Route: 048
     Dates: start: 20120802
  3. COVERSYL [Suspect]
     Route: 048
     Dates: start: 20120802
  4. PROZAC [Suspect]
     Route: 048
     Dates: start: 20120802
  5. PLAVIX [Suspect]
     Route: 048
     Dates: start: 20120802
  6. MONOALGIC [Suspect]
     Route: 048
     Dates: start: 20120802
  7. TAHOR [Suspect]
     Route: 048
     Dates: start: 20120802
  8. MONO TILDEM [Suspect]
     Route: 048
     Dates: start: 20120802
  9. LEVOTHYROX [Suspect]
     Route: 048
     Dates: start: 20120802
  10. JANUVIA [Suspect]
     Route: 048
     Dates: start: 20120802
  11. CORTANCYL [Suspect]
     Route: 048
     Dates: start: 20120802

REACTIONS (3)
  - Pemphigoid [Recovering/Resolving]
  - Erythema [Recovering/Resolving]
  - Pruritus [Recovering/Resolving]
